FAERS Safety Report 5218155-8 (Version None)
Quarter: 2007Q1

REPORT INFORMATION
  Report Type: 
  Country: None (occurrence: None)
  Receive Date: 20061130
  Receipt Date: 20060913
  Transmission Date: 20070707
  Serious: Yes (Hospitalization, Other)
  Sender: FDA-Public Use
  Company Number: US200609002129

PATIENT
  Age: 39 Year
  Sex: Male
  Weight: 102 kg

DRUGS (2)
  1. ZYPREXA [Suspect]
     Dosage: 5 MG, UNK, UNK;  10 MG, UNK, UNK
     Dates: start: 20020702
  2. ZYPREXA [Suspect]
     Dosage: 5 MG, UNK, UNK;  10 MG, UNK, UNK
     Dates: start: 20030131

REACTIONS (3)
  - BLOOD CHOLESTEROL ABNORMAL [None]
  - BLOOD TRIGLYCERIDES INCREASED [None]
  - PANCREATITIS [None]
